FAERS Safety Report 8309791-0 (Version None)
Quarter: 2012Q2

REPORT INFORMATION
  Report Type: 
  Country: None (occurrence: None)
  Receive Date: 20120425
  Receipt Date: 20120417
  Transmission Date: 20120825
  Serious: Yes (Other)
  Sender: FDA-Public Use
  Company Number: PHHY2012JP027823

PATIENT
  Sex: Male

DRUGS (2)
  1. RIVASTIGMINE [Suspect]
     Indication: DEMENTIA ALZHEIMER'S TYPE
     Route: 062
  2. SERMION [Concomitant]

REACTIONS (3)
  - HEPATIC NEOPLASM [None]
  - LIVER DISORDER [None]
  - APPLICATION SITE REACTION [None]
